FAERS Safety Report 14364043 (Version 1)
Quarter: 2018Q1

REPORT INFORMATION
  Report Type: Spontaneous
  Country: US (occurrence: US)
  Receive Date: 20180108
  Receipt Date: 20180108
  Transmission Date: 20180509
  Serious: Yes (Other)
  Sender: FDA-Public Use
  Company Number: US-BAYER-2018-003956

PATIENT
  Age: 33 Year
  Sex: Female

DRUGS (1)
  1. MIRENA [Suspect]
     Active Substance: LEVONORGESTREL
     Dosage: 20 MCG/24HR, CONT
     Route: 015
     Dates: start: 201302, end: 201610

REACTIONS (10)
  - Nausea [None]
  - Ocular discomfort [None]
  - Headache [None]
  - Vision blurred [None]
  - Eye pain [None]
  - Papilloedema [None]
  - Intracranial pressure increased [None]
  - Photophobia [None]
  - Phonophobia [None]
  - Tinnitus [None]

NARRATIVE: CASE EVENT DATE: 201601
